FAERS Safety Report 12831609 (Version 3)
Quarter: 2017Q1

REPORT INFORMATION
  Report Type: Spontaneous
  Country: CA (occurrence: CA)
  Receive Date: 20161009
  Receipt Date: 20170129
  Transmission Date: 20170428
  Serious: Yes (Other)
  Sender: FDA-Public Use
  Company Number: CA-BEH-2016073919

PATIENT
  Age: 70 Year
  Sex: Female

DRUGS (5)
  1. BERINERT [Suspect]
     Active Substance: HUMAN C1-ESTERASE INHIBITOR
     Indication: HEREDITARY ANGIOEDEMA
     Dosage: 1360 IU, UNK
     Route: 042
     Dates: start: 20160918
  2. PLAVIX [Concomitant]
     Active Substance: CLOPIDOGREL BISULFATE
     Route: 048
  3. ACETYLSALICYLIC ACID [Concomitant]
     Active Substance: ASPIRIN
     Route: 065
  4. FRESH FROZEN PLASMA [Concomitant]
     Active Substance: HUMAN PLASMA
     Route: 065
  5. TAZOCIN [Concomitant]
     Active Substance: PIPERACILLIN SODIUM\TAZOBACTAM SODIUM
     Indication: PNEUMONIA ASPIRATION
     Dosage: UNK
     Route: 042
     Dates: start: 20160918

REACTIONS (6)
  - Chromaturia [Recovered/Resolved]
  - Tracheal haemorrhage [Recovered/Resolved]
  - Laryngeal haemorrhage [Recovered/Resolved]
  - Infusion site haemorrhage [Recovered/Resolved]
  - Nasogastric output abnormal [Recovered/Resolved]
  - Haemorrhage [Recovered/Resolved]

NARRATIVE: CASE EVENT DATE: 20160918
